FAERS Safety Report 6689814-5 (Version None)
Quarter: 2010Q2

REPORT INFORMATION
  Report Type: 
  Country: None (occurrence: None)
  Receive Date: 20100421
  Receipt Date: 20100414
  Transmission Date: 20101027
  Serious: Yes (Hospitalization)
  Sender: FDA-Public Use
  Company Number: FR-SANOFI-AVENTIS-2010SA021880

PATIENT
  Age: 64 Year
  Sex: Male

DRUGS (4)
  1. DANATROL [Suspect]
     Indication: MYELOFIBROSIS
     Route: 048
     Dates: start: 20040101, end: 20100210
  2. DANATROL [Suspect]
     Indication: SPLENOMEGALY
     Route: 048
     Dates: start: 20040101, end: 20100210
  3. VERCYTE [Suspect]
     Indication: MYELOFIBROSIS
     Route: 048
     Dates: start: 20050101, end: 20091201
  4. VERCYTE [Suspect]
     Indication: SPLENOMEGALY
     Route: 048
     Dates: start: 20050101, end: 20091201

REACTIONS (2)
  - CYTOLYTIC HEPATITIS [None]
  - DIABETES MELLITUS [None]
